FAERS Safety Report 7537332-4 (Version None)
Quarter: 2011Q2

REPORT INFORMATION
  Report Type: 
  Country: None (occurrence: None)
  Receive Date: 20110609
  Receipt Date: 20110601
  Transmission Date: 20111010
  Serious: Yes (Hospitalization)
  Sender: FDA-Public Use
  Company Number: FR-MERCK-1106FRA00023

PATIENT
  Age: 86 Year
  Sex: Female

DRUGS (6)
  1. OFLOXACIN [Suspect]
     Indication: ESCHERICHIA INFECTION
     Route: 048
     Dates: start: 20110402, end: 20110404
  2. DILTIAZEM HYDROCHLORIDE [Concomitant]
     Indication: HYPERTENSION
     Route: 048
     Dates: start: 20110402
  3. SIMVASTATIN [Concomitant]
     Indication: DYSLIPIDAEMIA
     Route: 048
     Dates: start: 20110402
  4. ESOMEPRAZOLE MAGNESIUM [Concomitant]
     Route: 048
     Dates: start: 20110402
  5. PRIMAXIN [Suspect]
     Indication: ESCHERICHIA INFECTION
     Route: 051
     Dates: start: 20110402, end: 20110402
  6. CANDESARTAN CILEXETIL [Concomitant]
     Indication: HYPERTENSION
     Route: 048

REACTIONS (2)
  - CONFUSIONAL STATE [None]
  - PSYCHOMOTOR HYPERACTIVITY [None]
